FAERS Safety Report 13997379 (Version 1)
Quarter: 2017Q3

REPORT INFORMATION
  Report Type: Spontaneous
  Country: FR (occurrence: FR)
  Receive Date: 20170921
  Receipt Date: 20170921
  Transmission Date: 20171128
  Serious: Yes (Other)
  Sender: FDA-Public Use
  Company Number: FR-MERCK KGAA-2027149

PATIENT
  Age: 63 Year
  Sex: Female
  Weight: 62 kg

DRUGS (1)
  1. NOVOTHYROX [Suspect]
     Active Substance: LEVOTHYROXINE SODIUM
     Indication: BASEDOW^S DISEASE
     Route: 048
     Dates: end: 20170825

REACTIONS (8)
  - Nausea [Not Recovered/Not Resolved]
  - Glossodynia [Not Recovered/Not Resolved]
  - Mouth swelling [Not Recovered/Not Resolved]
  - Diarrhoea [Not Recovered/Not Resolved]
  - Decreased appetite [Not Recovered/Not Resolved]
  - Migraine [Not Recovered/Not Resolved]
  - Abdominal pain upper [Not Recovered/Not Resolved]
  - Fatigue [Not Recovered/Not Resolved]

NARRATIVE: CASE EVENT DATE: 201704
